FAERS Safety Report 5097150-6 (Version None)
Quarter: 2006Q3

REPORT INFORMATION
  Report Type: 
  Country: None (occurrence: None)
  Receive Date: 20060828
  Receipt Date: 20060815
  Transmission Date: 20061208
  Serious: Yes (Death)
  Sender: FDA-Public Use
  Company Number: B0435411A

PATIENT
  Age: 49 Year
  Sex: Female

DRUGS (4)
  1. RETROVIR [Suspect]
     Indication: HIV INFECTION
     Dates: start: 20020701
  2. EPIVIR [Suspect]
     Indication: HIV INFECTION
     Dates: start: 20020701
  3. ZIAGEN [Suspect]
     Indication: HIV INFECTION
     Dates: start: 20020701
  4. LOPINAVIR + RITONAVIR (LOPINAVIR + RITONAVIR) [Suspect]
     Indication: HIV INFECTION

REACTIONS (20)
  - ADRENAL CORTEX NECROSIS [None]
  - ADRENALITIS [None]
  - BLINDNESS [None]
  - CARDIAC DISORDER [None]
  - CONVULSION [None]
  - CYTOMEGALOVIRUS CHORIORETINITIS [None]
  - CYTOMEGALOVIRUS COLITIS [None]
  - CYTOMEGALOVIRUS INFECTION [None]
  - DEPRESSED LEVEL OF CONSCIOUSNESS [None]
  - DIARRHOEA HAEMORRHAGIC [None]
  - DISEASE PROGRESSION [None]
  - DRUG RESISTANCE [None]
  - ENCEPHALITIS [None]
  - HYPONATRAEMIA [None]
  - IMMUNE RECONSTITUTION SYNDROME [None]
  - LIVER DISORDER [None]
  - NERVOUS SYSTEM DISORDER [None]
  - PNEUMOCYSTIS JIROVECI PNEUMONIA [None]
  - PNEUMONIA CYTOMEGALOVIRAL [None]
  - PNEUMONITIS [None]
